FAERS Safety Report 4355641-7 (Version None)
Quarter: 2004Q2

REPORT INFORMATION
  Report Type: 
  Country: None (occurrence: None)
  Receive Date: 20040510
  Receipt Date: 20040412
  Transmission Date: 20050107
  Serious: Yes (Death)
  Sender: FDA-Public Use
  Company Number: PHEH2004US04147

PATIENT

DRUGS (1)
  1. SIMULECT [Suspect]
     Route: 042

REACTIONS (1)
  - RESPIRATORY FAILURE [None]
